FAERS Safety Report 21161351 (Version 1)
Quarter: 2022Q3

REPORT INFORMATION
  Report Type: Spontaneous
  Country: US (occurrence: US)
  Receive Date: 20220802
  Receipt Date: 20220802
  Transmission Date: 20221027
  Serious: No
  Sender: FDA-Public Use
  Company Number: US-ELI_LILLY_AND_COMPANY-US202207004494

PATIENT
  Sex: Female

DRUGS (2)
  1. HUMALOG KWIKPEN [Suspect]
     Active Substance: INSULIN LISPRO
     Indication: Type 2 diabetes mellitus
     Dosage: 46 U, UNKNOWN
     Route: 065
     Dates: start: 2016
  2. GABAPENTIN [Concomitant]
     Active Substance: GABAPENTIN
     Indication: Product used for unknown indication

REACTIONS (2)
  - Neuropathy peripheral [Unknown]
  - Accidental underdose [Unknown]

NARRATIVE: CASE EVENT DATE: 20170101
